FAERS Safety Report 7596353-6 (Version None)
Quarter: 2011Q3

REPORT INFORMATION
  Report Type: 
  Country: None (occurrence: None)
  Receive Date: 20110707
  Receipt Date: 20110627
  Transmission Date: 20111222
  Serious: Yes (Hospitalization)
  Sender: FDA-Public Use
  Company Number: US-BAXTER-2011BH019850

PATIENT
  Age: 0 Day
  Sex: Female
  Weight: 1 kg

DRUGS (3)
  1. DIANEAL [Suspect]
     Indication: EXPOSURE DURING BREAST FEEDING
     Route: 063
     Dates: start: 20110603
  2. DIANEAL [Suspect]
     Indication: MATERNAL EXPOSURE DURING PREGNANCY
     Route: 063
     Dates: start: 20110603
  3. DIANEAL [Suspect]
     Indication: MATERNAL EXPOSURE DURING PREGNANCY
     Route: 064
     Dates: start: 20110322, end: 20110603

REACTIONS (3)
  - PREMATURE BABY [None]
  - EXPOSURE DURING BREAST FEEDING [None]
  - MATERNAL EXPOSURE DURING PREGNANCY [None]
